FAERS Safety Report 7646528-2 (Version None)
Quarter: 2011Q3

REPORT INFORMATION
  Report Type: 
  Country: None (occurrence: None)
  Receive Date: 20110801
  Receipt Date: 20110726
  Transmission Date: 20111222
  Serious: Yes (Other)
  Sender: FDA-Public Use
  Company Number: US-JNJFOC-20100504403

PATIENT
  Sex: Male
  Weight: 108.86 kg

DRUGS (2)
  1. LEVAQUIN [Suspect]
     Indication: RESPIRATORY TRACT INFECTION
     Route: 048
     Dates: start: 20070401
  2. LEVAQUIN [Suspect]
     Indication: SINUS DISORDER
     Route: 048
     Dates: start: 20070401

REACTIONS (6)
  - JOINT INJURY [None]
  - SYNOVITIS [None]
  - BURSITIS [None]
  - ROTATOR CUFF SYNDROME [None]
  - TENDONITIS [None]
  - PLANTAR FASCIITIS [None]
